FAERS Safety Report 19094586 (Version 1)
Quarter: 2021Q2

REPORT INFORMATION
  Report Type: Spontaneous
  Country: FR (occurrence: FR)
  Receive Date: 20210405
  Receipt Date: 20210405
  Transmission Date: 20210717
  Serious: No
  Sender: FDA-Public Use
  Company Number: FR-JAZZ-2021-FR-004069

PATIENT

DRUGS (3)
  1. XYREM [Concomitant]
     Active Substance: SODIUM OXYBATE
  2. SUNOSI [Suspect]
     Active Substance: SOLRIAMFETOL
     Indication: NARCOLEPSY
     Dosage: 150 MILLIGRAM
     Dates: start: 20191209, end: 20200106
  3. SUNOSI [Suspect]
     Active Substance: SOLRIAMFETOL
     Dosage: 300 MILLIGRAM
     Dates: start: 20200120

REACTIONS (5)
  - Tachycardia [Recovered/Resolved]
  - Blood pressure increased [Recovered/Resolved]
  - Prescribed overdose [Unknown]
  - Drug ineffective [Unknown]
  - Chest discomfort [Unknown]

NARRATIVE: CASE EVENT DATE: 202012
